FAERS Safety Report 18898368 (Version 1)
Quarter: 2021Q1

REPORT INFORMATION
  Report Type: Spontaneous
  Country: US (occurrence: US)
  Receive Date: 20210215
  Receipt Date: 20210215
  Transmission Date: 20210420
  Serious: No
  Sender: FDA-Public Use
  Company Number: None

PATIENT
  Age: 63 Year
  Sex: Male

DRUGS (2)
  1. AZOPT [Suspect]
     Active Substance: BRINZOLAMIDE
     Indication: CYSTOID MACULAR OEDEMA
     Dates: start: 20180102, end: 20191226
  2. TRUSOPT [Suspect]
     Active Substance: DORZOLAMIDE HYDROCHLORIDE
     Indication: CYSTOID MACULAR OEDEMA
     Dates: start: 20191226

REACTIONS (3)
  - Eye irritation [None]
  - Lacrimation increased [None]
  - Ocular hyperaemia [None]

NARRATIVE: CASE EVENT DATE: 20200612
